FAERS Safety Report 9490989 (Version 2)
Quarter: 2013Q3

REPORT INFORMATION
  Report Type: Spontaneous
  Country: US (occurrence: US)
  Receive Date: 20130830
  Receipt Date: 20130927
  Transmission Date: 20140515
  Serious: No
  Sender: FDA-Public Use
  Company Number: US-PFIZER INC-2013249889

PATIENT
  Sex: Female

DRUGS (2)
  1. EFFEXOR XR [Suspect]
     Dosage: UNK
  2. PRISTIQ [Suspect]
     Dosage: 1 DF, 1X/DAY

REACTIONS (2)
  - Drug effect incomplete [Unknown]
  - Circumstance or information capable of leading to medication error [Unknown]
